FAERS Safety Report 5205984-X (Version None)
Quarter: 2007Q1

REPORT INFORMATION
  Report Type: 
  Country: None (occurrence: None)
  Receive Date: 20070111
  Receipt Date: 20070108
  Transmission Date: 20070707
  Serious: Yes (Other)
  Sender: FDA-Public Use
  Company Number: US-JNJFOC-20070101822

PATIENT
  Sex: Female
  Weight: 67.13 kg

DRUGS (5)
  1. FENTANYL TRANSDERMAL SYSTEM [Suspect]
     Route: 062
  2. FENTANYL TRANSDERMAL SYSTEM [Suspect]
     Indication: BACK PAIN
     Route: 062
  3. XANAX [Concomitant]
     Indication: NERVOUSNESS
     Route: 048
  4. ACCUPRIL [Concomitant]
     Indication: HYPERTENSION
     Route: 048
  5. HYDRODIURIL [Concomitant]
     Indication: HYPERTENSION
     Route: 048

REACTIONS (5)
  - DEHYDRATION [None]
  - INADEQUATE ANALGESIA [None]
  - KIDNEY INFECTION [None]
  - NERVOUSNESS [None]
  - WEIGHT DECREASED [None]
